FAERS Safety Report 7021387-X (Version None)
Quarter: 2010Q3

REPORT INFORMATION
  Report Type: 
  Country: None (occurrence: None)
  Receive Date: 20100929
  Receipt Date: 20100917
  Transmission Date: 20110219
  Serious: Yes (Hospitalization)
  Sender: FDA-Public Use
  Company Number: US-ELI_LILLY_AND_COMPANY-US201007000388

PATIENT
  Sex: Female

DRUGS (12)
  1. FORTEO [Suspect]
     Indication: OSTEOPOROSIS
     Dosage: 20 UG, DAILY (1/D)
     Dates: start: 20100429
  2. PREDNISONE [Concomitant]
     Dosage: 1 MG, DAILY (1/D)
  3. ZOCOR [Concomitant]
     Dosage: 20 MG, DAILY (1/D)
  4. TOPROL-XL [Concomitant]
     Dosage: 100 MG, DAILY (1/D)
  5. PRILOSEC [Concomitant]
     Dosage: 20 MG, DAILY (1/D)
  6. DETROL [Concomitant]
     Dosage: 2 MG, DAILY (1/D)
  7. COUMADIN [Concomitant]
     Dosage: 3.5 MG, DAILY (1/D)
  8. ARICEPT [Concomitant]
     Dosage: 5 MG, DAILY (1/D)
  9. CALCIUM [Concomitant]
     Dosage: 500 MG, 2/D
  10. COD LIVER OIL [Concomitant]
     Dosage: 1 D/F, DAILY (1/D)
  11. METHOTREXATE [Concomitant]
     Dosage: 15 MG, WEEKLY (1/W)
  12. VITAMIN TAB [Concomitant]

REACTIONS (3)
  - CYSTITIS [None]
  - INCONTINENCE [None]
  - MUSCULOSKELETAL PAIN [None]
